FAERS Safety Report 5501399-5 (Version None)
Quarter: 2007Q4

REPORT INFORMATION
  Report Type: 
  Country: None (occurrence: None)
  Receive Date: 20071026
  Receipt Date: 20071011
  Transmission Date: 20080405
  Serious: Yes (Death)
  Sender: FDA-Public Use
  Company Number: 2007BM000145

PATIENT

DRUGS (2)
  1. PREDNISONE [Suspect]
  2. ORAPRED [Suspect]

REACTIONS (33)
  - ABDOMINAL PAIN [None]
  - ANTEPARTUM HAEMORRHAGE [None]
  - ARTERIOSCLEROSIS [None]
  - ASCITES [None]
  - CAESAREAN SECTION [None]
  - CALCINOSIS [None]
  - CATHETER SITE HAEMORRHAGE [None]
  - CENTRAL VENOUS PRESSURE DECREASED [None]
  - COAGULOPATHY [None]
  - CONDITION AGGRAVATED [None]
  - DRUG EXPOSURE DURING PREGNANCY [None]
  - FOETAL MOVEMENTS DECREASED [None]
  - HAEMATEMESIS [None]
  - HEPATIC CIRRHOSIS [None]
  - HYPONATRAEMIA [None]
  - INTRA-UTERINE DEATH [None]
  - INTRACARDIAC THROMBUS [None]
  - LUPUS NEPHRITIS [None]
  - MUCOSAL HAEMORRHAGE [None]
  - NOCARDIOSIS [None]
  - PLACENTAL DISORDER [None]
  - PLACENTAL INFARCTION [None]
  - PREGNANCY [None]
  - PULMONARY HYPERTENSION [None]
  - PULMONARY OEDEMA [None]
  - PURPURA [None]
  - RENAL ABSCESS [None]
  - RENAL FAILURE ACUTE [None]
  - SEPSIS [None]
  - SPLENOMEGALY [None]
  - TRICUSPID VALVE INCOMPETENCE [None]
  - VENOUS PRESSURE JUGULAR INCREASED [None]
  - VENTRICULAR HYPERTROPHY [None]
